FAERS Safety Report 5918397-X (Version None)
Quarter: 2008Q4

REPORT INFORMATION
  Report Type: 
  Country: None (occurrence: None)
  Receive Date: 20081009
  Receipt Date: 20080925
  Transmission Date: 20090506
  Serious: Yes (Death)
  Sender: FDA-Public Use
  Company Number: US024756

PATIENT
  Sex: Female

DRUGS (1)
  1. ACTIQ [Suspect]
     Dosage: BUCCAL
     Route: 002

REACTIONS (1)
  - NEOPLASM MALIGNANT [None]
